FAERS Safety Report 8815439 (Version 4)
Quarter: 2012Q4

REPORT INFORMATION
  Report Type: 
  Country: US (occurrence: US)
  Receive Date: 20120928
  Receipt Date: 20121213
  Transmission Date: 20130627
  Serious: No
  Sender: FDA-Public Use
  Company Number: US-ASTRAZENECA-2012SE73535

PATIENT
  Age: 49 Year
  Sex: Male
  Weight: 108.9 kg

DRUGS (6)
  1. SYMBICORT PMDI [Suspect]
     Indication: ASTHMA
     Dosage: 320/9 MCG TWO PUFFS,BID
     Route: 055
     Dates: start: 2010
  2. SYMBICORT PMDI [Suspect]
     Indication: ASTHMA
     Dosage: 1 PUFF, TWO TIMES DAILY
     Route: 055
     Dates: start: 2011
  3. SYMBICORT PMDI [Suspect]
     Indication: ASTHMA
     Dosage: 160/4.5 MCG, TWO PUFFS, BID
     Route: 055
     Dates: start: 20101014
  4. ALLERGY MEDICATION/ ALLERGY MEDICINE [Concomitant]
     Indication: MULTIPLE ALLERGIES
     Dates: start: 2010
  5. ALBUTEROL [Concomitant]
     Indication: WHEEZING
     Dosage: TWO PUFFS EVERY 4 HOURS PRN
  6. ALBUTEROL [Concomitant]
     Indication: ASTHMA
     Dosage: TWO PUFFS EVERY 4 HOURS PRN

REACTIONS (6)
  - Dyspnoea [Recovered/Resolved]
  - Oropharyngeal pain [Not Recovered/Not Resolved]
  - Candidiasis [Unknown]
  - Intentional drug misuse [Unknown]
  - Drug dose omission [Unknown]
  - Off label use [Unknown]
